FAERS Safety Report 12496691 (Version 2)
Quarter: 2016Q3

REPORT INFORMATION
  Report Type: Spontaneous
  Country: AU (occurrence: AU)
  Receive Date: 20160624
  Receipt Date: 20160711
  Transmission Date: 20161109
  Serious: Yes (Other)
  Sender: FDA-Public Use
  Company Number: AU-AMGEN-AUSSP2016078982

PATIENT
  Age: 88 Year
  Sex: Female

DRUGS (7)
  1. MIRTAZAPINE. [Concomitant]
     Active Substance: MIRTAZAPINE
     Dosage: 30 MG, UNK
  2. FOLIC ACID. [Concomitant]
     Active Substance: FOLIC ACID
  3. THYROXINE [Concomitant]
     Active Substance: LEVOTHYROXINE
     Dosage: 10 MG, UNK
  4. VITAMIN D [Concomitant]
     Active Substance: CHOLECALCIFEROL
     Dosage: 1000 MG, UNK
  5. MELATONIN [Concomitant]
     Active Substance: MELATONIN
     Dosage: 4 MG, UNK
  6. PANADOL [Concomitant]
     Active Substance: ACETAMINOPHEN
  7. SENSIPAR [Suspect]
     Active Substance: CINACALCET HYDROCHLORIDE
     Indication: PARATHYROID TUMOUR BENIGN
     Dosage: 30 MG, BID
     Route: 048
     Dates: start: 201310

REACTIONS (6)
  - Dementia [Unknown]
  - Off label use [Unknown]
  - Hypothyroidism [Unknown]
  - Anxiety [Unknown]
  - Living in residential institution [Unknown]
  - Blood calcium increased [Unknown]

NARRATIVE: CASE EVENT DATE: 201605
